FAERS Safety Report 8166750-9 (Version None)
Quarter: 2012Q1

REPORT INFORMATION
  Report Type: 
  Country: None (occurrence: None)
  Receive Date: 20120221
  Receipt Date: 20120202
  Transmission Date: 20120608
  Serious: Yes (Death)
  Sender: FDA-Public Use
  Company Number: 2012020071

PATIENT
  Age: 56 Year
  Sex: Female

DRUGS (4)
  1. ACETAMINOPHEN WITH DIPHENHYDRAMINE(ACETAMINOPHEN, DIPHENHYDRAMINE) [Suspect]
     Dosage: ORAL
     Route: 048
  2. ACETAMINOPHEN AND HYDROCODONE BITARTRATE [Suspect]
     Dosage: ORAL
     Route: 048
  3. ACETAMINOPHEN WITH PROPDXYPHENE (ACETAMINOPHEN, PROPOXYPHENE) [Suspect]
     Dosage: ORAL
     Route: 048
  4. CARISOPRODOL WITH SALICYLATE(CARISOPRODOL, UNSPECIFIED SALICYLATE) [Suspect]
     Dosage: ORAL
     Route: 048

REACTIONS (3)
  - CARDIAC ARREST [None]
  - RESPIRATORY ARREST [None]
  - COMPLETED SUICIDE [None]
